FAERS Safety Report 7680555-4 (Version None)
Quarter: 2011Q3

REPORT INFORMATION
  Report Type: 
  Country: None (occurrence: None)
  Receive Date: 20110812
  Receipt Date: 20110802
  Transmission Date: 20111222
  Serious: Yes (Other)
  Sender: FDA-Public Use
  Company Number: CA-JNJFOC-20110700822

PATIENT
  Sex: Female
  Weight: 162.39 kg

DRUGS (14)
  1. REMICADE [Suspect]
     Route: 042
     Dates: start: 20110518
  2. EPIPEN [Concomitant]
     Indication: MULTIPLE ALLERGIES
  3. CRESTOR [Concomitant]
     Indication: BLOOD CHOLESTEROL INCREASED
  4. PREDNISOLONE [Concomitant]
     Indication: GLAUCOMA
  5. CLONAZEPAM [Concomitant]
     Indication: ANXIETY
  6. AMERGE [Concomitant]
     Indication: MIGRAINE
  7. ZOPICLONE [Concomitant]
     Indication: SLEEP DISORDER
  8. NEXIUM [Concomitant]
     Indication: GASTROOESOPHAGEAL REFLUX DISEASE
  9. NITROGLYCERIN [Concomitant]
  10. ALBUTEROL [Concomitant]
  11. SYNTHROID [Concomitant]
     Indication: HYPOTHYROIDISM
  12. BRIMONIDINE TARTRATE [Concomitant]
     Indication: GLAUCOMA
  13. REMICADE [Suspect]
     Indication: SARCOIDOSIS
     Route: 042
     Dates: start: 20110601
  14. HYDROCHLOROTHIAZIDE [Concomitant]
     Indication: HYPERTENSION

REACTIONS (2)
  - HYPERSOMNIA [None]
  - URINARY TRACT INFECTION [None]
